FAERS Safety Report 25053459 (Version 5)
Quarter: 2025Q2

REPORT INFORMATION
  Report Type: Spontaneous
  Country: US (occurrence: US)
  Receive Date: 20250307
  Receipt Date: 20250602
  Transmission Date: 20250717
  Serious: Yes (Hospitalization)
  Sender: SANOFI AVENTIS
  Company Number: US-SA-2025SA064005

PATIENT
  Age: 72 Year
  Sex: Male
  Weight: 91.6 kg

DRUGS (30)
  1. DUPIXENT [Suspect]
     Active Substance: DUPILUMAB
     Indication: Chronic obstructive pulmonary disease
     Dosage: 300 MG, QOW
     Route: 058
  2. TRELEGY ELLIPTA [Concomitant]
     Active Substance: FLUTICASONE FUROATE\UMECLIDINIUM BROMIDE\VILANTEROL TRIFENATATE
  3. METFORMIN [Concomitant]
     Active Substance: METFORMIN HYDROCHLORIDE
  4. TRIAMCINOLONE ACETONIDE [Concomitant]
     Active Substance: TRIAMCINOLONE ACETONIDE
  5. DOXYCYCLINE HYCLATE [Concomitant]
     Active Substance: DOXYCYCLINE HYCLATE
  6. CEFUROXIME [Concomitant]
     Active Substance: CEFUROXIME
  7. AZELASTINE [Concomitant]
     Active Substance: AZELASTINE
  8. ALBUTEROL SULFATE [Concomitant]
     Active Substance: ALBUTEROL SULFATE
  9. ESCITALOPRAM OXALATE [Concomitant]
     Active Substance: ESCITALOPRAM OXALATE
  10. LOSARTAN POTASSIUM [Concomitant]
     Active Substance: LOSARTAN POTASSIUM
  11. CLOPIDOGREL [Concomitant]
     Active Substance: CLOPIDOGREL BISULFATE
  12. PREDNISONE [Concomitant]
     Active Substance: PREDNISONE
  13. ATORVASTATIN CALCIUM [Concomitant]
     Active Substance: ATORVASTATIN CALCIUM
  14. METFORMIN HYDROCHLORIDE [Concomitant]
     Active Substance: METFORMIN HYDROCHLORIDE
  15. ASPIRIN [Concomitant]
     Active Substance: ASPIRIN
  16. MYCOPHENOLATE MOFETIL [Concomitant]
     Active Substance: MYCOPHENOLATE MOFETIL
  17. HUMALOG KWIKPEN [Concomitant]
     Active Substance: INSULIN LISPRO
  18. TACROLIMUS [Concomitant]
     Active Substance: TACROLIMUS
  19. PRIVIGEN [Concomitant]
     Active Substance: HUMAN IMMUNOGLOBULIN G
  20. TRADJENTA [Concomitant]
     Active Substance: LINAGLIPTIN
  21. METOPROLOL TARTRATE [Concomitant]
     Active Substance: METOPROLOL TARTRATE
  22. FUROSEMIDE [Concomitant]
     Active Substance: FUROSEMIDE
  23. ATOVAQUONE [Concomitant]
     Active Substance: ATOVAQUONE
  24. GABAPENTIN [Concomitant]
     Active Substance: GABAPENTIN
  25. METHOCARBAMOL [Concomitant]
     Active Substance: METHOCARBAMOL
  26. PANTOPRAZOLE SODIUM [Concomitant]
     Active Substance: PANTOPRAZOLE SODIUM
  27. LANTUS [Concomitant]
     Active Substance: INSULIN GLARGINE
  28. CRESEMBA [Concomitant]
     Active Substance: ISAVUCONAZONIUM SULFATE
  29. SULFAMETHOXAZOLE AND TRIMETHOPRIM [Concomitant]
     Active Substance: SULFAMETHOXAZOLE\TRIMETHOPRIM
  30. DIGOXIN [Concomitant]
     Active Substance: DIGOXIN

REACTIONS (8)
  - Lung disorder [Unknown]
  - Dyspnoea [Unknown]
  - Hypopnoea [Unknown]
  - Chills [Unknown]
  - Nausea [Unknown]
  - Eating disorder [Unknown]
  - Diarrhoea [Recovering/Resolving]
  - Nasopharyngitis [Recovering/Resolving]

NARRATIVE: CASE EVENT DATE: 20250201
